FAERS Safety Report 6831027-8 (Version None)
Quarter: 2010Q3

REPORT INFORMATION
  Report Type: 
  Country: None (occurrence: None)
  Receive Date: 20100712
  Receipt Date: 20070312
  Transmission Date: 20110219
  Serious: Yes (Other)
  Sender: FDA-Public Use
  Company Number: US-PFIZER INC-2007008002

PATIENT
  Sex: Female
  Weight: 72.6 kg

DRUGS (12)
  1. CHANTIX [Suspect]
     Indication: TOBACCO ABUSE
     Route: 048
     Dates: start: 20070123
  2. NOVOLOG [Concomitant]
     Indication: DIABETES MELLITUS
  3. METFORMIN HCL [Concomitant]
     Indication: DIABETES MELLITUS
  4. TRICOR [Concomitant]
  5. HYDROCHLOROTHIAZIDE [Concomitant]
  6. PREVACID [Concomitant]
  7. LIPITOR [Concomitant]
  8. ISOSORBIDE [Concomitant]
  9. NORTRIPTYLINE [Concomitant]
  10. COZAAR [Concomitant]
  11. ACETYLSALICYLIC ACID [Concomitant]
  12. LORAZEPAM [Concomitant]

REACTIONS (6)
  - ANXIETY [None]
  - CHEST PAIN [None]
  - DEPRESSED MOOD [None]
  - HUNGER [None]
  - NERVOUSNESS [None]
  - PSYCHOMOTOR HYPERACTIVITY [None]
